FAERS Safety Report 5197466-9 (Version None)
Quarter: 2006Q4

REPORT INFORMATION
  Report Type: 
  Country: None (occurrence: None)
  Receive Date: 20060927
  Receipt Date: 20060711
  Transmission Date: 20070319
  Serious: No
  Sender: FDA-Public Use
  Company Number: US-CVT-061498

PATIENT
  Sex: Female

DRUGS (1)
  1. RANEXA [Suspect]
     Indication: ANGINA PECTORIS
     Dosage: UNK, UNK, ORAL
     Route: 048
     Dates: start: 20060101, end: 20060101

REACTIONS (3)
  - ANOREXIA [None]
  - FATIGUE [None]
  - OEDEMA PERIPHERAL [None]
